FAERS Safety Report 21225972 (Version 1)
Quarter: 2022Q3

REPORT INFORMATION
  Report Type: Spontaneous
  Country: US (occurrence: US)
  Receive Date: 20220818
  Receipt Date: 20220818
  Transmission Date: 20221026
  Serious: Yes (Hospitalization, Other)
  Sender: FDA-Public Use
  Company Number: US-BRISTOL-MYERS SQUIBB COMPANY-2022-091238

PATIENT
  Age: 83 Year
  Sex: Male

DRUGS (2)
  1. REVLIMID [Suspect]
     Active Substance: LENALIDOMIDE
     Indication: Myelodysplastic syndrome
     Route: 048
  2. WARFARIN [Concomitant]
     Active Substance: WARFARIN
     Indication: Product used for unknown indication
     Route: 048

REACTIONS (2)
  - Myocardial infarction [Not Recovered/Not Resolved]
  - Cardiac failure congestive [Not Recovered/Not Resolved]

NARRATIVE: CASE EVENT DATE: 20220727
